FAERS Safety Report 25653397 (Version 1)
Quarter: 2025Q3

REPORT INFORMATION
  Report Type: Spontaneous
  Country: EU (occurrence: EU)
  Receive Date: 20250807
  Receipt Date: 20250807
  Transmission Date: 20251021
  Serious: Yes (Hospitalization, Other)
  Sender: CIPLA
  Company Number: EU-EMA-DD-20250724-7482675-105241

PATIENT

DRUGS (1)
  1. ESOMEPRAZOLE [Suspect]
     Active Substance: ESOMEPRAZOLE
     Indication: Dyspepsia
     Dosage: 40 MILLIGRAM, QD (ONCE A DAY)
     Route: 065

REACTIONS (7)
  - Rhabdomyolysis [Recovered/Resolved]
  - Acute kidney injury [Recovered/Resolved]
  - Hypokalaemia [Recovered/Resolved]
  - Myalgia [Recovered/Resolved]
  - Asthenia [Recovered/Resolved]
  - Chromaturia [Recovered/Resolved]
  - Malaise [Recovered/Resolved]
